FAERS Safety Report 7399564-8 (Version None)
Quarter: 2011Q2

REPORT INFORMATION
  Report Type: 
  Country: None (occurrence: None)
  Receive Date: 20110407
  Receipt Date: 20110228
  Transmission Date: 20111010
  Serious: Yes (Other)
  Sender: FDA-Public Use
  Company Number: US-BAYER-201042088NA

PATIENT
  Sex: Female
  Weight: 58.957 kg

DRUGS (13)
  1. SULFAMETHOXAZOLE [Concomitant]
     Dosage: 160 MG, UNK
     Route: 048
     Dates: start: 20080602
  2. AVIANE-28 [Concomitant]
     Dosage: UNK
     Route: 048
     Dates: start: 20080602
  3. YAZ [Suspect]
     Indication: CONTRACEPTION
  4. YASMIN [Suspect]
     Indication: ACNE
     Dosage: UNK UNK, QD
     Route: 048
     Dates: start: 20050309, end: 20090814
  5. TAMIFLU [Concomitant]
     Dosage: 75 MG, UNK
     Route: 048
  6. LEVAQUIN [Concomitant]
     Dosage: 250 MG, UNK
     Route: 048
     Dates: start: 20080602
  7. CYMBALTA [Concomitant]
     Indication: DEPRESSION
     Dosage: 30 MG, UNK
     Route: 048
     Dates: start: 20080908
  8. YASMIN [Suspect]
     Indication: CONTRACEPTION
     Route: 048
     Dates: start: 20070201, end: 20080915
  9. ZOLOFT [Concomitant]
     Route: 048
  10. OCELLA [Suspect]
     Indication: ACNE
     Dosage: UNK UNK, QD
     Route: 048
     Dates: start: 20050309, end: 20090814
  11. YAZ [Suspect]
     Indication: ACNE
     Dosage: UNK UNK, QD
     Route: 048
     Dates: start: 20050309, end: 20090814
  12. OCELLA [Suspect]
     Indication: CONTRACEPTION
  13. ESTRADIOL [Concomitant]
     Dosage: UNK
     Route: 048
     Dates: start: 20071205

REACTIONS (1)
  - CHOLECYSTITIS [None]
